FAERS Safety Report 6050857-6 (Version None)
Quarter: 2009Q1

REPORT INFORMATION
  Report Type: 
  Country: None (occurrence: None)
  Receive Date: 20090126
  Receipt Date: 20080521
  Transmission Date: 20090719
  Serious: No
  Sender: FDA-Public Use
  Company Number: US-ABBOTT-08P-163-0452931-00

PATIENT
  Sex: Male

DRUGS (6)
  1. TRICOR [Suspect]
     Indication: BLOOD TRIGLYCERIDES INCREASED
     Route: 048
     Dates: end: 20071101
  2. ATENOLOL [Concomitant]
     Indication: BLOOD PRESSURE
     Route: 048
  3. TERAZOSIN HCL [Concomitant]
     Indication: BLOOD PRESSURE
     Route: 048
  4. RABEPRAZOLE SODIUM [Concomitant]
     Indication: MALABSORPTION
     Route: 048
  5. ASPIRIN [Concomitant]
     Indication: DRUG USE FOR UNKNOWN INDICATION
     Route: 048
  6. IRON [Concomitant]
     Indication: DRUG USE FOR UNKNOWN INDICATION
     Route: 048

REACTIONS (4)
  - ASTHENIA [None]
  - BLOOD CREATININE INCREASED [None]
  - LABORATORY TEST ABNORMAL [None]
  - MYALGIA [None]
